FAERS Safety Report 25020037 (Version 1)
Quarter: 2025Q1

REPORT INFORMATION
  Report Type: Spontaneous
  Country: MY (occurrence: MY)
  Receive Date: 20250227
  Receipt Date: 20250227
  Transmission Date: 20250409
  Serious: Yes (Hospitalization, Other)
  Sender: NOVARTIS
  Company Number: MY-002147023-NVSC2025MY001367

PATIENT
  Age: 41 Year
  Sex: Male

DRUGS (1)
  1. INCLISIRAN [Suspect]
     Active Substance: INCLISIRAN
     Indication: Low density lipoprotein increased
     Route: 058
     Dates: start: 20250105

REACTIONS (5)
  - Bradycardia [Recovered/Resolved with Sequelae]
  - Blood pressure decreased [Recovered/Resolved with Sequelae]
  - Hyperhidrosis [Recovered/Resolved with Sequelae]
  - Syncope [Recovered/Resolved with Sequelae]
  - Ventricular enlargement [Unknown]

NARRATIVE: CASE EVENT DATE: 20250105
